FAERS Safety Report 8905734 (Version 1)
Quarter: 2012Q4

REPORT INFORMATION
  Report Type: 
  Country: US (occurrence: US)
  Receive Date: 20121113
  Receipt Date: 20121113
  Transmission Date: 20130627
  Serious: No
  Sender: FDA-Public Use
  Company Number: US-ASTRAZENECA-2012SE83401

PATIENT
  Age: 61 Year
  Sex: Female
  Weight: 68 kg

DRUGS (7)
  1. SEROQUEL [Suspect]
     Indication: NERVOUSNESS
     Route: 048
  2. SEROQUEL [Suspect]
     Indication: ANXIETY
     Route: 048
  3. SEROQUEL [Suspect]
     Indication: NERVOUSNESS
     Route: 048
     Dates: start: 2002
  4. SEROQUEL [Suspect]
     Indication: ANXIETY
     Route: 048
     Dates: start: 2002
  5. NEXIUM [Suspect]
     Indication: HYPERCHLORHYDRIA
     Route: 048
     Dates: start: 2011
  6. IBUPROFEN [Suspect]
     Indication: ARTHRALGIA
     Route: 048
  7. TRAMADOL [Concomitant]
     Indication: PAIN
     Route: 048
     Dates: start: 2011

REACTIONS (9)
  - Pruritus [Recovered/Resolved]
  - Joint effusion [Unknown]
  - Influenza [Unknown]
  - Influenza like illness [Unknown]
  - Arthralgia [Unknown]
  - Urticaria [Recovered/Resolved]
  - Hyperchlorhydria [Unknown]
  - Off label use [Unknown]
  - Drug effect increased [Unknown]
